FAERS Safety Report 18790934 (Version 1)
Quarter: 2021Q1

REPORT INFORMATION
  Report Type: Spontaneous
  Country: US (occurrence: US)
  Receive Date: 20210126
  Receipt Date: 20210126
  Transmission Date: 20210419
  Serious: No
  Sender: FDA-Public Use
  Company Number: US-NEPHRON STERILE COMPOUNDING CENTER-2105845

PATIENT

DRUGS (1)
  1. FENTANYL CITRATE 500MCG, BUPIVACAINE HYDROCHLORIDE 0.125% 312.5MG IN 0 [Suspect]
     Active Substance: BUPIVACAINE HYDROCHLORIDE\FENTANYL CITRATE
     Indication: LABOUR PAIN
     Route: 008

REACTIONS (1)
  - Drug ineffective [None]
